FAERS Safety Report 8793109 (Version 2)
Quarter: 2013Q1

REPORT INFORMATION
  Report Type: Spontaneous
  Country: US (occurrence: US)
  Receive Date: 20120918
  Receipt Date: 20130311
  Transmission Date: 20140127
  Serious: No
  Sender: FDA-Public Use
  Company Number: US-ASTRAZENECA-2012SE70194

PATIENT
  Age: 34 Year
  Sex: Female
  Weight: 84.4 kg

DRUGS (10)
  1. SEROQUEL [Suspect]
     Indication: SLEEP DISORDER
     Route: 048
  2. SEROQUEL [Suspect]
     Indication: ANXIETY
     Route: 048
  3. SEROQUEL [Suspect]
     Indication: DEPRESSION
     Route: 048
  4. SEROQUEL [Suspect]
     Indication: SLEEP DISORDER
     Route: 048
  5. SEROQUEL [Suspect]
     Indication: ANXIETY
     Route: 048
  6. SEROQUEL [Suspect]
     Indication: DEPRESSION
     Route: 048
  7. SEROQUEL [Suspect]
     Indication: SLEEP DISORDER
     Route: 048
  8. SEROQUEL [Suspect]
     Indication: ANXIETY
     Route: 048
  9. SEROQUEL [Suspect]
     Indication: DEPRESSION
     Route: 048
  10. PRISTIQ [Concomitant]

REACTIONS (3)
  - Insomnia [Unknown]
  - Activities of daily living impaired [Unknown]
  - Drug dose omission [Unknown]
